FAERS Safety Report 15947837 (Version 2)
Quarter: 2019Q4

REPORT INFORMATION
  Report Type: Spontaneous
  Country: US (occurrence: US)
  Receive Date: 20190211
  Receipt Date: 20191105
  Transmission Date: 20200122
  Serious: Yes (Hospitalization)
  Sender: FDA-Public Use
  Company Number: US-AMNEAL PHARMACEUTICALS-2019AMN00163

PATIENT
  Sex: Male
  Weight: 38 kg

DRUGS (3)
  1. ACTHAR [Concomitant]
     Active Substance: CORTICOTROPIN
     Indication: PRODUCT USED FOR UNKNOWN INDICATION
     Dosage: UNK
  2. VIGABATRIN. [Suspect]
     Active Substance: VIGABATRIN
     Indication: EPILEPSY
     Dosage: 1500 MG, 2X/DAY
     Route: 048
  3. VIGABATRIN. [Suspect]
     Active Substance: VIGABATRIN
     Dosage: 1500 MG, 2X/DAY
     Route: 048

REACTIONS (1)
  - Adverse event [Unknown]
